FAERS Safety Report 5473164-9 (Version None)
Quarter: 2007Q3

REPORT INFORMATION
  Report Type: 
  Country: None (occurrence: None)
  Receive Date: 20070927
  Receipt Date: 20070912
  Transmission Date: 20080115
  Serious: Yes (Hospitalization)
  Sender: FDA-Public Use
  Company Number: GXKR2007IT07948

PATIENT

DRUGS (1)
  1. PARACETAMOL (NGX)(PARACETAMOL) UNKNOWN [Suspect]

REACTIONS (1)
  - ACUTE HEPATIC FAILURE [None]
